FAERS Safety Report 18358694 (Version 1)
Quarter: 2020Q4

REPORT INFORMATION
  Report Type: Spontaneous
  Country: IT (occurrence: IT)
  Receive Date: 20201008
  Receipt Date: 20201008
  Transmission Date: 20210114
  Serious: Yes (Other)
  Sender: FDA-Public Use
  Company Number: IT-AUROBINDO-AUR-APL-2020-051410

PATIENT
  Age: 15 Year
  Sex: Male

DRUGS (7)
  1. CYCLOPHOSPHAMIDE. [Suspect]
     Active Substance: CYCLOPHOSPHAMIDE
     Indication: ALLOGENIC BONE MARROW TRANSPLANTATION THERAPY
  2. BUSULFAN. [Suspect]
     Active Substance: BUSULFAN
     Indication: PROPHYLACTIC CHEMOTHERAPY
     Dosage: UNK
     Route: 065
  3. MELPHALAN. [Suspect]
     Active Substance: MELPHALAN
     Indication: PROPHYLACTIC CHEMOTHERAPY
     Dosage: UNK
     Route: 065
  4. HEPARIN [Concomitant]
     Active Substance: HEPARIN SODIUM
     Indication: THROMBOSIS PROPHYLAXIS
     Dosage: UNK
     Route: 065
  5. CYCLOPHOSPHAMIDE. [Suspect]
     Active Substance: CYCLOPHOSPHAMIDE
     Indication: PROPHYLACTIC CHEMOTHERAPY
     Dosage: UNK
     Route: 065
  6. BUSULFAN. [Suspect]
     Active Substance: BUSULFAN
     Indication: ALLOGENIC BONE MARROW TRANSPLANTATION THERAPY
  7. MELPHALAN. [Suspect]
     Active Substance: MELPHALAN
     Indication: ALLOGENIC BONE MARROW TRANSPLANTATION THERAPY

REACTIONS (2)
  - Product use in unapproved indication [Unknown]
  - Inflammatory myofibroblastic tumour [Recovered/Resolved]
